FAERS Safety Report 20783046 (Version 1)
Quarter: 2022Q2

REPORT INFORMATION
  Report Type: Spontaneous
  Country: US (occurrence: US)
  Receive Date: 20220504
  Receipt Date: 20220504
  Transmission Date: 20220721
  Serious: No
  Sender: FDA-Public Use
  Company Number: US-APOTEX-2022AP006455

PATIENT
  Sex: Female

DRUGS (1)
  1. TRAVOPROST [Suspect]
     Active Substance: TRAVOPROST
     Indication: Product used for unknown indication
     Dosage: 1 DROP IN EACH EYE EVERY NIGHT
     Route: 047

REACTIONS (3)
  - Extra dose administered [Unknown]
  - Product delivery mechanism issue [Unknown]
  - Wrong technique in device usage process [Unknown]
